FAERS Safety Report 26113616 (Version 2)
Quarter: 2025Q4

REPORT INFORMATION
  Report Type: Report from Study
  Country: EU (occurrence: EU)
  Receive Date: 20251202
  Receipt Date: 20251209
  Transmission Date: 20260117
  Serious: Yes (Other)
  Sender: TEVA
  Company Number: EU-TEVA-VS-3399026

PATIENT
  Age: 14 Year
  Sex: Female

DRUGS (1)
  1. PREDNISOLONE [Suspect]
     Active Substance: PREDNISOLONE
     Indication: Acute febrile neutrophilic dermatosis
     Route: 065

REACTIONS (2)
  - Steroid dependence [Unknown]
  - Cushingoid [Unknown]
